FAERS Safety Report 10478211 (Version 1)
Quarter: 2014Q3

REPORT INFORMATION
  Report Type: Spontaneous
  Country: US (occurrence: US)
  Receive Date: 20140926
  Receipt Date: 20140926
  Transmission Date: 20150326
  Serious: No
  Sender: FDA-Public Use
  Company Number: US-MYLANLABS-2014S1011961

PATIENT
  Age: 90 Year
  Sex: Male
  Weight: 86.18 kg

DRUGS (2)
  1. NITROGLYCERIN TRANSDERMAL SYSTEM [Suspect]
     Active Substance: NITROGLYCERIN
     Indication: POOR PERIPHERAL CIRCULATION
     Dosage: .2 MG,QH
     Route: 062
     Dates: start: 201405
  2. NITROGLYCERIN TRANSDERMAL SYSTEM [Suspect]
     Active Substance: NITROGLYCERIN
     Indication: OFF LABEL USE

REACTIONS (3)
  - Dizziness [Not Recovered/Not Resolved]
  - Fatigue [Not Recovered/Not Resolved]
  - Feeling abnormal [Not Recovered/Not Resolved]

NARRATIVE: CASE EVENT DATE: 201405
